FAERS Safety Report 6048240-2 (Version None)
Quarter: 2009Q1

REPORT INFORMATION
  Report Type: 
  Country: None (occurrence: None)
  Receive Date: 20090123
  Receipt Date: 20090119
  Transmission Date: 20090719
  Serious: Yes (Hospitalization)
  Sender: FDA-Public Use
  Company Number: FR-BRISTOL-MYERS SQUIBB COMPANY-14387419

PATIENT
  Age: 62 Year
  Sex: Male

DRUGS (2)
  1. TAXOL [Suspect]
     Dates: start: 20080630, end: 20080826
  2. AVASTIN [Suspect]
     Indication: BREAST CANCER
     Dosage: 25MG/ML
     Dates: start: 20080630, end: 20080826

REACTIONS (3)
  - CARDIOMYOPATHY [None]
  - HYPERTENSION [None]
  - MITRAL VALVE INCOMPETENCE [None]
